FAERS Safety Report 17812353 (Version 1)
Quarter: 2020Q2

REPORT INFORMATION
  Report Type: Spontaneous
  Country: FR (occurrence: FR)
  Receive Date: 20200521
  Receipt Date: 20200521
  Transmission Date: 20200714
  Serious: Yes (Hospitalization, Other)
  Sender: FDA-Public Use
  Company Number: FR-PFIZER INC-2020198938

PATIENT
  Age: 22 Year
  Sex: Male

DRUGS (9)
  1. ALCOHOL. [Concomitant]
     Active Substance: ALCOHOL
     Dosage: UNK
  2. ESOMEPRAZOLE MAGNESIUM. [Suspect]
     Active Substance: ESOMEPRAZOLE MAGNESIUM
     Dosage: 840 MG, SINGLE
     Route: 048
     Dates: start: 20200325
  3. DESLORATADINE. [Suspect]
     Active Substance: DESLORATADINE
     Dosage: 75 MG, SINGLE
     Route: 048
     Dates: start: 20200325
  4. MAXILASE [Suspect]
     Active Substance: PANCRELIPASE
     Dosage: 15 DF, SINGLE
     Dates: start: 20200325
  5. CETIRIZINE [Suspect]
     Active Substance: CETIRIZINE HYDROCHLORIDE
     Dosage: 220 MG, SINGLE
     Route: 048
     Dates: start: 20200325
  6. TIORFAN [Suspect]
     Active Substance: RACECADOTRIL
     Dosage: 12 DF, SINGLE
     Route: 048
     Dates: start: 20200325
  7. IBUPROFEN. [Suspect]
     Active Substance: IBUPROFEN
     Dosage: 20 DF, SINGLE
     Route: 048
     Dates: start: 20200325
  8. AMOXICILLIN. [Suspect]
     Active Substance: AMOXICILLIN
     Dosage: 7 G, SINGLE
     Route: 048
     Dates: start: 20200325
  9. PARACETAMOL [Suspect]
     Active Substance: ACETAMINOPHEN
     Dosage: 8 G, SINGLE
     Route: 048
     Dates: start: 20200325

REACTIONS (5)
  - Intentional overdose [Recovered/Resolved]
  - Suicide attempt [Unknown]
  - Vomiting [Recovered/Resolved]
  - Abdominal pain upper [Recovered/Resolved]
  - Drug level increased [Recovered/Resolved]

NARRATIVE: CASE EVENT DATE: 20200325
